FAERS Safety Report 14651108 (Version 2)
Quarter: 2018Q2

REPORT INFORMATION
  Report Type: Spontaneous
  Country: CA (occurrence: CA)
  Receive Date: 20180316
  Receipt Date: 20180406
  Transmission Date: 20180711
  Serious: Yes (Other)
  Sender: FDA-Public Use
  Company Number: CA-PFIZER INC-2018104944

PATIENT
  Age: 61 Year
  Sex: Male

DRUGS (1)
  1. XELJANZ [Suspect]
     Active Substance: TOFACITINIB CITRATE
     Indication: RHEUMATOID ARTHRITIS
     Dosage: 5 MG, 2X/DAY
     Route: 048
     Dates: start: 20180302, end: 20180306

REACTIONS (7)
  - Myocardial infarction [Unknown]
  - Nausea [Unknown]
  - Transient ischaemic attack [Recovering/Resolving]
  - Headache [Unknown]
  - Erythema [Unknown]
  - Night sweats [Unknown]
  - Vomiting [Unknown]
